FAERS Safety Report 5674972-1 (Version None)
Quarter: 2008Q1

REPORT INFORMATION
  Report Type: 
  Country: None (occurrence: None)
  Receive Date: 20080320
  Receipt Date: 20080308
  Transmission Date: 20080703
  Serious: Yes (Other)
  Sender: FDA-Public Use
  Company Number: US-PFIZER INC-2008009464

PATIENT
  Sex: Female
  Weight: 105.7 kg

DRUGS (4)
  1. CHANTIX [Suspect]
     Indication: SMOKING CESSATION THERAPY
     Route: 048
     Dates: start: 20061201, end: 20061201
  2. CHANTIX [Suspect]
     Indication: TOBACCO ABUSE
  3. ZOLOFT [Suspect]
     Indication: DEPRESSION
     Route: 048
  4. ZOLOFT [Suspect]
     Indication: ANGER

REACTIONS (12)
  - ABNORMAL DREAMS [None]
  - ANXIETY [None]
  - EAR PAIN [None]
  - ERYTHEMA [None]
  - FATIGUE [None]
  - INSOMNIA [None]
  - MENTAL STATUS CHANGES [None]
  - NASAL OEDEMA [None]
  - OEDEMA [None]
  - RHINORRHOEA [None]
  - SEROTONIN SYNDROME [None]
  - THINKING ABNORMAL [None]
